FAERS Safety Report 4874285-1 (Version None)
Quarter: 2006Q1

REPORT INFORMATION
  Report Type: 
  Country: None (occurrence: None)
  Receive Date: 20060106
  Receipt Date: 20051005
  Transmission Date: 20060701
  Serious: Yes (Hospitalization)
  Sender: FDA-Public Use
  Company Number: US-MERCK-0510USA04005

PATIENT
  Age: 65 Year
  Sex: Female
  Weight: 72 kg

DRUGS (2)
  1. VIOXX [Suspect]
     Indication: SPINAL COLUMN STENOSIS
     Route: 048
     Dates: start: 20011001, end: 20021001
  2. ECOTRIN [Concomitant]
     Route: 065

REACTIONS (5)
  - BACK DISORDER [None]
  - BLOOD PRESSURE INCREASED [None]
  - DILATATION VENTRICULAR [None]
  - ENDOSCOPY [None]
  - GASTROINTESTINAL DISORDER [None]
